FAERS Safety Report 7355820-0 (Version None)
Quarter: 2011Q1

REPORT INFORMATION
  Report Type: 
  Country: None (occurrence: None)
  Receive Date: 20110316
  Receipt Date: 20110310
  Transmission Date: 20110831
  Serious: Yes (Hospitalization)
  Sender: FDA-Public Use
  Company Number: US-B.I. PHARMACEUTICALS,INC./RIDGEFIELD-2011-BP-07578BP

PATIENT
  Age: 85 Year
  Sex: Male

DRUGS (6)
  1. FLOMAX [Suspect]
     Indication: PROSTATE CANCER
     Dosage: 0.8 MG
     Route: 048
     Dates: start: 20100901
  2. ATENELOL [Concomitant]
     Indication: ATRIAL FIBRILLATION
  3. FISH OIL [Concomitant]
     Indication: SUPPLEMENTATION THERAPY
  4. LISINOPRIL [Concomitant]
     Indication: HYPERTENSION
  5. COLCHICINE [Concomitant]
     Indication: GOUT
  6. COUMADIN [Concomitant]
     Indication: ATRIAL FIBRILLATION

REACTIONS (3)
  - FISTULA [None]
  - POLLAKIURIA [None]
  - DRUG INEFFECTIVE [None]
